FAERS Safety Report 8089632-X (Version None)
Quarter: 2012Q1

REPORT INFORMATION
  Report Type: 
  Country: None (occurrence: None)
  Receive Date: 20120128
  Receipt Date: 20110713
  Transmission Date: 20120608
  Serious: Yes (Hospitalization)
  Sender: FDA-Public Use
  Company Number: US-ABBOTT-11P-163-0726427-00

PATIENT
  Sex: Female
  Weight: 49.94 kg

DRUGS (18)
  1. HUMIRA [Suspect]
     Dates: start: 20110509
  2. OMEPRAZOLE [Concomitant]
     Indication: GASTRITIS
  3. OXYCONTIN [Concomitant]
     Indication: PAIN
  4. SUMATRYTAN [Concomitant]
     Indication: MIGRAINE
  5. ALPRAZOLAM [Concomitant]
     Indication: HEART RATE DECREASED
  6. VERAPAMIL [Concomitant]
     Indication: HYPERTENSION
  7. ZOLPIDEM [Concomitant]
     Indication: INSOMNIA
  8. SAVELLA [Concomitant]
     Indication: FIBROMYALGIA
  9. OXYCODONE HCL [Concomitant]
     Indication: PAIN
  10. VITAMIN D [Concomitant]
     Indication: VITAMIN SUPPLEMENTATION
  11. LOVAZA [Concomitant]
     Indication: VITAMIN SUPPLEMENTATION
  12. BISOPROLOL [Concomitant]
     Indication: PRODUCT USED FOR UNKNOWN INDICATION
  13. SECRALFATE [Concomitant]
     Indication: GASTRITIS
  14. LYRICA [Concomitant]
     Indication: PRODUCT USED FOR UNKNOWN INDICATION
  15. HUMIRA [Suspect]
     Dates: start: 20110531
  16. LEVOTHYROXINE SODIUM [Concomitant]
     Indication: THYROID DISORDER
  17. HUMIRA [Suspect]
     Indication: RHEUMATOID ARTHRITIS
     Dates: start: 20080101
  18. ONDANSETRON [Concomitant]
     Indication: NAUSEA

REACTIONS (8)
  - CHOLELITHIASIS [None]
  - WEIGHT DECREASED [None]
  - RASH PAPULAR [None]
  - MEDIAL TIBIAL STRESS SYNDROME [None]
  - CHEST PAIN [None]
  - MOBILITY DECREASED [None]
  - CONTUSION [None]
  - RASH [None]
